FAERS Safety Report 10172741 (Version 1)
Quarter: 2014Q2

REPORT INFORMATION
  Report Type: Spontaneous
  Country: US (occurrence: None)
  Receive Date: 20140513
  Receipt Date: 20140513
  Transmission Date: 20141212
  Serious: Yes (Other)
  Sender: FDA-Public Use
  Company Number: 2014SA057770

PATIENT
  Sex: Female

DRUGS (1)
  1. ACT DRY MOUTH LOZENGES [Suspect]
     Indication: PRODUCT USED FOR UNKNOWN INDICATION

REACTIONS (3)
  - Dyspnoea [None]
  - Pharyngeal oedema [None]
  - Reaction to drug excipients [None]
